FAERS Safety Report 5075051-7 (Version None)
Quarter: 2006Q3

REPORT INFORMATION
  Report Type: 
  Country: None (occurrence: None)
  Receive Date: 20060804
  Receipt Date: 20060721
  Transmission Date: 20061208
  Serious: Yes (Hospitalization, Other)
  Sender: FDA-Public Use
  Company Number: ENT 2006-0102

PATIENT
  Age: 57 Year
  Sex: Male

DRUGS (3)
  1. COMTAN [Suspect]
     Indication: PARKINSON'S DISEASE
     Dosage: 200 MG, SIX TO EIGHT MONTHS AGO
     Dates: end: 20060613
  2. SELEGILINE HCL [Concomitant]
  3. SINEMET [Concomitant]

REACTIONS (8)
  - BLISTER [None]
  - CHROMATURIA [None]
  - DRUG HYPERSENSITIVITY [None]
  - EOSINOPHILIC PNEUMONIA [None]
  - HYPERHIDROSIS [None]
  - MUSCULAR WEAKNESS [None]
  - PNEUMOTHORAX [None]
  - URINE ODOUR ABNORMAL [None]
